FAERS Safety Report 17589069 (Version 1)
Quarter: 2020Q1

REPORT INFORMATION
  Report Type: Spontaneous
  Country: IT (occurrence: IT)
  Receive Date: 20200327
  Receipt Date: 20200327
  Transmission Date: 20200409
  Serious: Yes (Hospitalization)
  Sender: FDA-Public Use
  Company Number: IT-TEVA-2020-IT-1210297

PATIENT
  Age: 59 Year
  Sex: Female

DRUGS (3)
  1. SOTALOL. [Suspect]
     Active Substance: SOTALOL
     Indication: TACHYCARDIA
     Dosage: 1 DF
     Route: 048
     Dates: start: 20140101, end: 20200125
  2. FUROSEMIDE. [Concomitant]
     Active Substance: FUROSEMIDE
  3. SIVASTIN [Concomitant]
     Active Substance: SIMVASTATIN

REACTIONS (2)
  - Ventricular extrasystoles [Recovering/Resolving]
  - Ventricular arrhythmia [Recovering/Resolving]

NARRATIVE: CASE EVENT DATE: 20200125
